FAERS Safety Report 8755820 (Version 2)
Quarter: 2012Q4

REPORT INFORMATION
  Report Type: 
  Country: US (occurrence: US)
  Receive Date: 20120827
  Receipt Date: 20120918
  Transmission Date: 20130627
  Serious: No
  Sender: FDA-Public Use
  Company Number: US-PFIZER INC-2012208301

PATIENT
  Age: 78 Year
  Sex: Female

DRUGS (14)
  1. SKELAXIN [Suspect]
     Indication: MUSCLE SPASTICITY
     Dosage: 800 mg, 3x/day
     Route: 048
     Dates: start: 20120301
  2. SKELAXIN [Suspect]
     Dosage: 400 mg, 3x/day
     Route: 048
     Dates: end: 201208
  3. GABAPENTIN [Concomitant]
     Dosage: 600 mg, 4x/day
  4. PRILOSEC [Concomitant]
     Dosage: 40 mg, 2x/day
  5. RANITIDINE [Concomitant]
     Dosage: 150 mg, UNK
  6. PLAVIX [Concomitant]
     Dosage: 75 mg, UNK
  7. PRAVASTATIN [Concomitant]
     Dosage: 40 mg, UNK
  8. IRBESARTAN [Concomitant]
     Dosage: 150 mg, UNK
  9. METOPROLOL [Concomitant]
     Dosage: 25 mg, UNK
  10. OXYBUTYNIN [Concomitant]
     Dosage: 5 mg, 4x/day
  11. BIOTIN [Concomitant]
  12. FOSAMAX [Concomitant]
  13. LEVOTHYROXINE [Concomitant]
     Dosage: 125 ug, UNK
  14. FLONASE [Concomitant]
     Dosage: UNK, Q AM

REACTIONS (2)
  - Cough [Unknown]
  - Fatigue [Recovered/Resolved]
